FAERS Safety Report 24273281 (Version 2)
Quarter: 2024Q3

REPORT INFORMATION
  Report Type: Spontaneous
  Country: PK (occurrence: PK)
  Receive Date: 20240902
  Receipt Date: 20240918
  Transmission Date: 20241017
  Serious: Yes (Death, Hospitalization)
  Sender: MACLEODS
  Company Number: PK-MACLEODS PHARMA-MAC2024049077

PATIENT

DRUGS (4)
  1. TRAMADOL [Suspect]
     Active Substance: TRAMADOL\TRAMADOL HYDROCHLORIDE
     Indication: Pain management
     Route: 048
  2. ACETAMINOPHEN [Suspect]
     Active Substance: ACETAMINOPHEN
     Indication: Pain management
     Dosage: AS NEEDED
     Route: 048
  3. ASPIRIN [Suspect]
     Active Substance: ASPIRIN
     Indication: Pain management
     Route: 065
  4. PREGABALIN [Suspect]
     Active Substance: PREGABALIN
     Indication: Pain management
     Dosage: AT BEDTIME
     Route: 048

REACTIONS (4)
  - Intestinal obstruction [Fatal]
  - Septic shock [Unknown]
  - Chronic kidney disease [Unknown]
  - Metabolic acidosis [Unknown]
